FAERS Safety Report 6431377-3 (Version None)
Quarter: 2009Q4

REPORT INFORMATION
  Report Type: 
  Country: None (occurrence: None)
  Receive Date: 20091106
  Receipt Date: 20091026
  Transmission Date: 20100525
  Serious: Yes (Hospitalization)
  Sender: FDA-Public Use
  Company Number: PHHY2009NL46747

PATIENT
  Age: 71 Year
  Sex: Male
  Weight: 81 kg

DRUGS (1)
  1. ALISKIREN ALI+TAB [Suspect]
     Dosage: 150 MG, DAILY

REACTIONS (3)
  - ABDOMINAL OPERATION [None]
  - GASTRIC CANCER [None]
  - SEPSIS [None]
